FAERS Safety Report 11001407 (Version 1)
Quarter: 2015Q2

REPORT INFORMATION
  Report Type: Spontaneous
  Country: US (occurrence: US)
  Receive Date: 20150408
  Receipt Date: 20150408
  Transmission Date: 20150821
  Serious: No
  Sender: FDA-Public Use
  Company Number: US-SA-2015SA031458

PATIENT
  Age: 83 Year
  Sex: Female

DRUGS (1)
  1. ALLEGRA [Suspect]
     Active Substance: FEXOFENADINE HYDROCHLORIDE
     Indication: REACTION TO COLOURING
     Route: 048
     Dates: start: 20150310, end: 20150311

REACTIONS (1)
  - Pruritus [Not Recovered/Not Resolved]
